FAERS Safety Report 12173181 (Version 2)
Quarter: 2016Q1

REPORT INFORMATION
  Report Type: Spontaneous
  Country: DE (occurrence: DE)
  Receive Date: 20160311
  Receipt Date: 20160315
  Transmission Date: 20160526
  Serious: Yes (Death, Other)
  Sender: FDA-Public Use
  Company Number: DE-PFIZER INC-2016146517

PATIENT
  Age: 18 Year
  Sex: Female

DRUGS (3)
  1. AMPHOTERICIN B. [Concomitant]
     Active Substance: AMPHOTERICIN B
     Indication: SEPSIS
     Dosage: 1 MG/KG, (MIC 132 UG/ML)
  2. HYDROCORTISONE. [Suspect]
     Active Substance: HYDROCORTISONE
     Indication: INTRACRANIAL PRESSURE INCREASED
     Dosage: 1 G, UNK
  3. MICONAZOLE. [Concomitant]
     Active Substance: MICONAZOLE
     Indication: SEPSIS
     Dosage: 3?400 MG T.I.D. (MIC0.5 UG/ML)

REACTIONS (4)
  - Immunodeficiency [Unknown]
  - Endocarditis [Fatal]
  - Scedosporium infection [Fatal]
  - Multiple organ dysfunction syndrome [Fatal]
